FAERS Safety Report 6926023-6 (Version None)
Quarter: 2010Q3

REPORT INFORMATION
  Report Type: 
  Country: None (occurrence: None)
  Receive Date: 20100816
  Receipt Date: 20100804
  Transmission Date: 20110219
  Serious: Yes (Other)
  Sender: FDA-Public Use
  Company Number: AU-PFIZER INC-2010098149

PATIENT
  Age: 46 Year
  Sex: Female

DRUGS (2)
  1. CHAMPIX [Suspect]
  2. FISH OIL [Concomitant]

REACTIONS (1)
  - SOMNAMBULISM [None]
